FAERS Safety Report 16471358 (Version 6)
Quarter: 2020Q1

REPORT INFORMATION
  Report Type: Spontaneous
  Country: US (occurrence: US)
  Receive Date: 20190624
  Receipt Date: 20200314
  Transmission Date: 20200409
  Serious: Yes (Hospitalization, Other)
  Sender: FDA-Public Use
  Company Number: US-ACTELION-A-NJ2019-192170

PATIENT
  Sex: Female
  Weight: 49.43 kg

DRUGS (7)
  1. VELETRI [Suspect]
     Active Substance: EPOPROSTENOL
     Dosage: 28.3 UNK
     Route: 042
  2. ADEMPAS [Concomitant]
     Active Substance: RIOCIGUAT
  3. OPSUMIT [Suspect]
     Active Substance: MACITENTAN
     Indication: PULMONARY ARTERIAL HYPERTENSION
     Dosage: 10 MG, QD
     Route: 048
  4. VELETRI [Suspect]
     Active Substance: EPOPROSTENOL
     Dosage: 10 NG/KG, PER MIN
     Route: 042
  5. VELETRI [Suspect]
     Active Substance: EPOPROSTENOL
     Dosage: 25.4 NG/KG, PER MIN
     Route: 042
  6. VELETRI [Suspect]
     Active Substance: EPOPROSTENOL
     Indication: PULMONARY ARTERIAL HYPERTENSION
     Dosage: 14 NG/KG, PER MIN
     Route: 042
  7. VELETRI [Suspect]
     Active Substance: EPOPROSTENOL
     Dosage: 19 NG/KG, PER MIN
     Route: 042

REACTIONS (12)
  - Investigation [Unknown]
  - Skin irritation [Unknown]
  - Asthenia [Recovered/Resolved]
  - Catheter site erythema [Unknown]
  - Rash erythematous [Recovering/Resolving]
  - Oedema peripheral [Unknown]
  - Menstruation irregular [Unknown]
  - Pain in jaw [Not Recovered/Not Resolved]
  - Device leakage [Recovered/Resolved]
  - Sepsis [Unknown]
  - Catheter site rash [Unknown]
  - Transplant evaluation [Unknown]
